FAERS Safety Report 25478543 (Version 2)
Quarter: 2025Q3

REPORT INFORMATION
  Report Type: Spontaneous
  Country: TR (occurrence: TR)
  Receive Date: 20250625
  Receipt Date: 20250707
  Transmission Date: 20251020
  Serious: Yes (Other)
  Sender: TEVA
  Company Number: TR-TEVA-VS-3344214

PATIENT
  Age: 33 Year
  Sex: Male

DRUGS (2)
  1. DOXYCYCLINE [Suspect]
     Active Substance: DOXYCYCLINE
     Indication: Brucellosis
     Route: 048
  2. RIFAMPIN [Concomitant]
     Active Substance: RIFAMPIN
     Indication: Brucellosis
     Route: 048

REACTIONS (3)
  - Oesophagitis [Recovering/Resolving]
  - Laryngitis [Recovering/Resolving]
  - Aphthous ulcer [Recovering/Resolving]
